FAERS Safety Report 4342041-9 (Version None)
Quarter: 2004Q2

REPORT INFORMATION
  Report Type: 
  Country: None (occurrence: None)
  Receive Date: 20040415
  Receipt Date: 20040403
  Transmission Date: 20050107
  Serious: Yes (Other)
  Sender: FDA-Public Use
  Company Number: 2002055047

PATIENT
  Sex: Male
  Weight: 110.6777 kg

DRUGS (5)
  1. NAVANE [Suspect]
     Indication: DELUSION
     Dosage: 4 MG (DAILY), ORAL
     Route: 048
     Dates: start: 20010101
  2. RISPERDAL [Concomitant]
  3. HYDROXYZINE EMBONATE (HYDROXYZINE EMBONATE) [Concomitant]
  4. DIPHENHYDRAMINE HCL [Concomitant]
  5. LANSOPRAZOLE [Concomitant]

REACTIONS (24)
  - AGITATION [None]
  - BALANCE DISORDER [None]
  - CONDITION AGGRAVATED [None]
  - DERMATITIS CONTACT [None]
  - DIZZINESS [None]
  - DYSPEPSIA [None]
  - DYSPNOEA [None]
  - HEADACHE [None]
  - HEART RATE INCREASED [None]
  - HEPATIC ENZYME INCREASED [None]
  - HYPERHIDROSIS [None]
  - HYPERSOMNIA [None]
  - LIVER DISORDER [None]
  - MALAISE [None]
  - MUSCLE TWITCHING [None]
  - NASAL CONGESTION [None]
  - NASAL POLYPS [None]
  - PHOTOPSIA [None]
  - PHOTOSENSITIVITY REACTION [None]
  - RESTLESSNESS [None]
  - SENSATION OF PRESSURE IN EAR [None]
  - TREMOR [None]
  - VISION BLURRED [None]
  - VISUAL DISTURBANCE [None]
